FAERS Safety Report 4643947-3 (Version None)
Quarter: 2005Q2

REPORT INFORMATION
  Report Type: 
  Country: None (occurrence: None)
  Receive Date: 20050425
  Receipt Date: 20050419
  Transmission Date: 20051028
  Serious: Yes (Hospitalization)
  Sender: FDA-Public Use
  Company Number: SE-MERCK-0504SWE00026

PATIENT
  Age: 52 Year
  Sex: Male

DRUGS (4)
  1. CLINORIL [Suspect]
     Indication: GOUT
     Route: 065
     Dates: start: 20050221, end: 20050225
  2. [THERAPY UNSPECIFIED] [Concomitant]
     Indication: RENAL TRANSPLANT
     Route: 047
     Dates: start: 20050120
  3. PREDNISOLONE [Concomitant]
     Route: 065
  4. MYCOPHENOLATE MOFETIL [Concomitant]
     Route: 065

REACTIONS (2)
  - BLOOD CREATININE INCREASED [None]
  - HYDRONEPHROSIS [None]
